FAERS Safety Report 9928462 (Version 1)
Quarter: 2014Q1

REPORT INFORMATION
  Report Type: Spontaneous
  Country: NL (occurrence: NL)
  Receive Date: 20140227
  Receipt Date: 20140227
  Transmission Date: 20141002
  Serious: Yes (Other)
  Sender: FDA-Public Use
  Company Number: NL-ASTELLAS-2014EU001536

PATIENT
  Age: 75 Year
  Sex: Male

DRUGS (3)
  1. XTANDI [Suspect]
     Indication: PROSTATE CANCER
     Dosage: 160 MG, UNKNOWN/D
     Route: 048
     Dates: start: 20140128
  2. METFORMINE [Concomitant]
     Dosage: UNK
     Route: 065
  3. TOLBUTAMIDE [Concomitant]
     Dosage: UNK
     Route: 065

REACTIONS (2)
  - Generalised erythema [Recovering/Resolving]
  - Swelling [Recovering/Resolving]
